FAERS Safety Report 18513137 (Version 6)
Quarter: 2021Q1

REPORT INFORMATION
  Report Type: Report from Study
  Country: BR (occurrence: BR)
  Receive Date: 20201117
  Receipt Date: 20210315
  Transmission Date: 20210419
  Serious: Yes (Other)
  Sender: FDA-Public Use
  Company Number: NVSC2020BR290405

PATIENT
  Age: 45 Year
  Sex: Female

DRUGS (4)
  1. COSENTYX [Suspect]
     Active Substance: SECUKINUMAB
     Dosage: 300 MG, UNKNOWN
     Route: 065
     Dates: start: 20200210
  2. COSENTYX [Suspect]
     Active Substance: SECUKINUMAB
     Indication: PSORIATIC ARTHROPATHY
     Dosage: 300 MG, UNKNOWN
     Route: 065
     Dates: start: 202001
  3. COSENTYX [Suspect]
     Active Substance: SECUKINUMAB
     Dosage: UNK
     Route: 065
     Dates: start: 202003
  4. COSENTYX [Suspect]
     Active Substance: SECUKINUMAB
     Dosage: UNK
     Route: 065
     Dates: start: 202002

REACTIONS (26)
  - Pain [Recovering/Resolving]
  - Blood glucose increased [Unknown]
  - Influenza [Unknown]
  - Psoriasis [Unknown]
  - Abdominal pain [Recovering/Resolving]
  - Blood cholesterol increased [Unknown]
  - Arthralgia [Not Recovered/Not Resolved]
  - Aortic elongation [Recovering/Resolving]
  - Weight fluctuation [Recovering/Resolving]
  - Viral infection [Recovered/Resolved]
  - Headache [Recovering/Resolving]
  - Oropharyngeal pain [Recovering/Resolving]
  - Hypothyroidism [Unknown]
  - Sinusitis [Recovering/Resolving]
  - Skin lesion [Not Recovered/Not Resolved]
  - Face oedema [Not Recovered/Not Resolved]
  - Diarrhoea [Recovered/Resolved]
  - Diarrhoea [Recovering/Resolving]
  - Product dose omission issue [Unknown]
  - Anxiety [Unknown]
  - Weight increased [Unknown]
  - Alopecia [Not Recovered/Not Resolved]
  - Vomiting [Recovered/Resolved]
  - Weight decreased [Not Recovered/Not Resolved]
  - Overweight [Recovering/Resolving]
  - Product storage error [Unknown]

NARRATIVE: CASE EVENT DATE: 20200915
